FAERS Safety Report 5139343-5 (Version None)
Quarter: 2006Q4

REPORT INFORMATION
  Report Type: 
  Country: None (occurrence: None)
  Receive Date: 20061024
  Receipt Date: 20061012
  Transmission Date: 20070319
  Serious: Yes (Hospitalization)
  Sender: FDA-Public Use
  Company Number: 2006-02646

PATIENT
  Age: 72 Year
  Sex: Female

DRUGS (4)
  1. VELCADE [Suspect]
     Indication: MANTLE CELL LYMPHOMA
     Dates: start: 20060313, end: 20060619
  2. PREDNISONE TAB [Suspect]
     Indication: MANTLE CELL LYMPHOMA
     Dates: start: 20060313, end: 20060619
  3. CYCLOPHOSPHAMIDE [Suspect]
     Indication: MANTLE CELL LYMPHOMA
     Dates: start: 20060313, end: 20060619
  4. RITUXIMAB (RITUXIMAB) SOLUTION [Suspect]
     Dates: start: 20060313, end: 20060619

REACTIONS (4)
  - ATRIAL FIBRILLATION [None]
  - COUGH [None]
  - OEDEMA PERIPHERAL [None]
  - PYREXIA [None]
